FAERS Safety Report 9477828 (Version 1)
Quarter: 2013Q3

REPORT INFORMATION
  Report Type: Spontaneous
  Country: US (occurrence: None)
  Receive Date: 20130826
  Receipt Date: 20130826
  Transmission Date: 20140515
  Serious: Yes (Hospitalization)
  Sender: FDA-Public Use
  Company Number: None

PATIENT
  Sex: Female
  Weight: 68.04 kg

DRUGS (1)
  1. MIRENA [Suspect]
     Dates: start: 20130604

REACTIONS (5)
  - Pelvic pain [None]
  - Dyspareunia [None]
  - Vaginal haemorrhage [None]
  - Abdominal pain [None]
  - Nausea [None]
